FAERS Safety Report 4445755-5 (Version None)
Quarter: 2004Q3

REPORT INFORMATION
  Report Type: 
  Country: None (occurrence: None)
  Receive Date: 20040903
  Receipt Date: 20040824
  Transmission Date: 20050211
  Serious: Yes (Hospitalization)
  Sender: FDA-Public Use
  Company Number: 2004-BP-07195AU

PATIENT
  Age: 69 Year
  Sex: Female

DRUGS (2)
  1. ASASANTIN SR (TA) (ACETYLSALICYLIC ACID, DIPYRIDAMOLE) [Suspect]
     Indication: TRANSIENT ISCHAEMIC ATTACK
     Dosage: 200/25 MG (SEE TEXT, ONE DOSE ONCE (STRENGTH:200/25 MG) PO
     Route: 048
     Dates: start: 20040130, end: 20040130
  2. FIBSOL [Concomitant]

REACTIONS (4)
  - HEADACHE [None]
  - NAUSEA [None]
  - RETCHING [None]
  - VOMITING [None]
